FAERS Safety Report 8360194-2 (Version None)
Quarter: 2012Q2

REPORT INFORMATION
  Report Type: 
  Country: None (occurrence: None)
  Receive Date: 20120515
  Receipt Date: 20120510
  Transmission Date: 20120825
  Serious: No
  Sender: FDA-Public Use
  Company Number: US-ASTRAZENECA-2009SE33730

PATIENT
  Age: 55 Year
  Sex: Female
  Weight: 85.7 kg

DRUGS (8)
  1. CLARITIN [Concomitant]
     Dates: start: 20060922
  2. LIPITOR [Concomitant]
     Dates: start: 20060922
  3. AMBIEN [Concomitant]
     Dates: start: 20060922
  4. SEROQUEL XR [Suspect]
     Route: 048
  5. SEROQUEL XR [Suspect]
     Route: 048
     Dates: start: 20060922
  6. CYMBALTA [Concomitant]
     Dates: start: 20060922
  7. SEROQUEL XR [Suspect]
     Route: 048
  8. KLONOPIN [Concomitant]
     Dates: start: 20060922

REACTIONS (3)
  - ADVERSE EVENT [None]
  - TYPE 2 DIABETES MELLITUS [None]
  - INTENTIONAL DRUG MISUSE [None]
